FAERS Safety Report 10746575 (Version 3)
Quarter: 2015Q1

REPORT INFORMATION
  Report Type: Spontaneous
  Country: US (occurrence: US)
  Receive Date: 20150128
  Receipt Date: 20150224
  Transmission Date: 20150721
  Serious: No
  Sender: FDA-Public Use
  Company Number: US-GLAXOSMITHKLINE-US2014GSK048611

PATIENT
  Sex: Male

DRUGS (2)
  1. VOTRIENT [Suspect]
     Active Substance: PAZOPANIB HYDROCHLORIDE
     Indication: PRODUCT USED FOR UNKNOWN INDICATION
     Dosage: 800 MG, QD
     Route: 065
     Dates: start: 20141023, end: 20141120
  2. VOTRIENT [Suspect]
     Active Substance: PAZOPANIB HYDROCHLORIDE
     Dosage: 800 MG, QD
     Dates: start: 20141023

REACTIONS (6)
  - Hypertension [Unknown]
  - Pain [Unknown]
  - Vision blurred [Unknown]
  - Fatigue [Unknown]
  - Hair colour changes [Unknown]
  - Eyelash discolouration [Unknown]
